FAERS Safety Report 7772352-6 (Version None)
Quarter: 2011Q3

REPORT INFORMATION
  Report Type: 
  Country: None (occurrence: None)
  Receive Date: 20110922
  Receipt Date: 20110113
  Transmission Date: 20111222
  Serious: Yes (Other)
  Sender: FDA-Public Use
  Company Number: US-ASTRAZENECA-2007UW00990

PATIENT
  Age: 24 Year
  Sex: Female
  Weight: 59 kg

DRUGS (23)
  1. SEROQUEL [Suspect]
     Dosage: 25 MG - 300 MG
     Route: 048
     Dates: start: 20050509, end: 20051010
  2. CELEXA [Concomitant]
     Dates: start: 20030204
  3. SEROQUEL [Suspect]
     Dosage: 25 MG - 300 MG
     Route: 048
     Dates: start: 20030204
  4. SEROQUEL [Suspect]
     Dosage: 25 MG - 300 MG
     Route: 048
     Dates: start: 20050509, end: 20051010
  5. RISPERDAL [Suspect]
     Indication: DEPRESSION
     Route: 065
     Dates: start: 20000601
  6. RISPERDAL [Suspect]
     Route: 065
     Dates: start: 20030204
  7. MOTRIN [Concomitant]
     Dates: start: 20030204
  8. PROVERA [Concomitant]
     Dates: start: 20030708
  9. SEROQUEL [Suspect]
     Indication: SCHIZOPHRENIA
     Route: 048
     Dates: start: 20000601, end: 20020101
  10. TRAZODONE HCL [Concomitant]
     Dates: start: 20030204
  11. GLIPIZIDE [Concomitant]
     Dates: start: 20030204
  12. CODEINE SULFATE [Concomitant]
     Dates: start: 20050101
  13. SEROQUEL [Suspect]
     Dosage: 25 MG - 300 MG
     Route: 048
     Dates: start: 20050509, end: 20051010
  14. RISPERDAL [Suspect]
     Dates: start: 20050509, end: 20051010
  15. RISPERDAL [Suspect]
     Route: 065
     Dates: start: 20030204
  16. SEROQUEL [Suspect]
     Indication: BIPOLAR DISORDER
     Route: 048
     Dates: start: 20000601, end: 20020101
  17. SEROQUEL [Suspect]
     Indication: SLEEP DISORDER
     Route: 048
     Dates: start: 20000601, end: 20020101
  18. RISPERDAL [Suspect]
     Dates: start: 20050509, end: 20051010
  19. ACETAMINOPHEN [Concomitant]
     Route: 048
     Dates: start: 20050101
  20. SEROQUEL [Suspect]
     Dosage: 25 MG - 300 MG
     Route: 048
     Dates: start: 20030204
  21. SEROQUEL [Suspect]
     Dosage: 25 MG - 300 MG
     Route: 048
     Dates: start: 20030204
  22. RISPERDAL [Suspect]
     Indication: SLEEP DISORDER
     Route: 065
     Dates: start: 20000601
  23. CLINDAMYCIN [Concomitant]
     Dates: start: 20050101

REACTIONS (5)
  - CARPAL TUNNEL SYNDROME [None]
  - DIABETES MELLITUS INADEQUATE CONTROL [None]
  - SUICIDAL IDEATION [None]
  - MIGRAINE [None]
  - HYPOAESTHESIA [None]
